FAERS Safety Report 26070310 (Version 1)
Quarter: 2025Q4

REPORT INFORMATION
  Report Type: Spontaneous
  Country: US (occurrence: None)
  Receive Date: 20251120
  Receipt Date: 20251120
  Transmission Date: 20260118
  Serious: Yes (Other)
  Sender: FDA-CTU
  Company Number: None

PATIENT
  Age: 33 Year
  Sex: Female
  Weight: 96.3 kg

DRUGS (1)
  1. ARIPIPRAZOLE [Suspect]
     Active Substance: ARIPIPRAZOLE
     Indication: Bipolar disorder

REACTIONS (5)
  - Abnormal behaviour [None]
  - Gambling disorder [None]
  - Compulsive shopping [None]
  - Emotional distress [None]
  - Adverse drug reaction [None]

NARRATIVE: CASE EVENT DATE: 20240620
